FAERS Safety Report 21013113 (Version 1)
Quarter: 2022Q2

REPORT INFORMATION
  Report Type: Spontaneous
  Country: US (occurrence: US)
  Receive Date: 20220627
  Receipt Date: 20220627
  Transmission Date: 20220720
  Serious: No
  Sender: FDA-Public Use
  Company Number: US-SA-SAC20220617001004

PATIENT
  Age: 60 Year
  Sex: Male

DRUGS (1)
  1. DUPIXENT [Suspect]
     Active Substance: DUPILUMAB
     Dosage: 300 MG
     Route: 058

REACTIONS (6)
  - Parophthalmia [Unknown]
  - Periorbital swelling [Unknown]
  - Lacrimation increased [Unknown]
  - Eye irritation [Unknown]
  - Photophobia [Unknown]
  - Eye pain [Unknown]

NARRATIVE: CASE EVENT DATE: 20220601
